FAERS Safety Report 7426763-9 (Version None)
Quarter: 2011Q2

REPORT INFORMATION
  Report Type: 
  Country: None (occurrence: None)
  Receive Date: 20110420
  Receipt Date: 20110412
  Transmission Date: 20111010
  Serious: Yes (Other)
  Sender: FDA-Public Use
  Company Number: US-PFIZER INC-US-WYE-H12339809

PATIENT
  Sex: Female
  Weight: 86.168 kg

DRUGS (3)
  1. DESVENLAFAXINE SUCCINATE MONOHYDRATE [Suspect]
     Indication: MAJOR DEPRESSION
     Dosage: 50 MG, 1X/DAY
     Route: 048
     Dates: start: 20090924, end: 20091120
  2. ADVIL LIQUI-GELS [Concomitant]
     Indication: HEADACHE
     Dosage: UNK
     Route: 065
     Dates: start: 19980101
  3. EXCEDRIN (MIGRAINE) [Concomitant]
     Indication: ARTHRALGIA
     Dosage: UNK
     Route: 065
     Dates: start: 20090912

REACTIONS (2)
  - ABORTION SPONTANEOUS [None]
  - DRUG EXPOSURE DURING PREGNANCY [None]
